FAERS Safety Report 18435727 (Version 2)
Quarter: 2020Q4

REPORT INFORMATION
  Report Type: Report from Study
  Country: CA (occurrence: CA)
  Receive Date: 20201028
  Receipt Date: 20201123
  Transmission Date: 20210114
  Serious: No
  Sender: FDA-Public Use
  Company Number: CA-TOLMAR, INC.-20CA023378

PATIENT
  Age: 77 Year
  Sex: Male

DRUGS (1)
  1. ELIGARD [Suspect]
     Active Substance: LEUPROLIDE ACETATE
     Indication: PROSTATE CANCER
     Dosage: 45 MG, Q 6 MONTH
     Route: 058
     Dates: start: 20201011

REACTIONS (5)
  - Wrong technique in product usage process [Unknown]
  - Product administration error [Unknown]
  - Incorrect dose administered [Unknown]
  - Device leakage [Unknown]
  - Needle issue [Unknown]

NARRATIVE: CASE EVENT DATE: 20201011
